FAERS Safety Report 5166336-4 (Version None)
Quarter: 2006Q4

REPORT INFORMATION
  Report Type: 
  Country: None (occurrence: None)
  Receive Date: 20061127
  Receipt Date: 20061115
  Transmission Date: 20070319
  Serious: Yes (Other)
  Sender: FDA-Public Use
  Company Number: 200410483BBE

PATIENT
  Sex: Male

DRUGS (9)
  1. HYPRHO-D [Suspect]
  2. IMMUNE GLOBULIN (HUMAN) [Suspect]
  3. IMMUNE GLOBULIN (HUMAN) [Suspect]
  4. IMMUNE GLOBULIN (HUMAN) [Suspect]
  5. IMMUNE GLOBULIN (HUMAN) [Suspect]
  6. IMMUNE GLOBULIN (HUMAN) [Suspect]
  7. IMMUNE GLOBULIN (HUMAN) [Suspect]
  8. IMMUNE GLOBULIN (HUMAN) [Suspect]
  9. IMMUNE GLOBULIN (HUMAN) [Suspect]

REACTIONS (3)
  - DRUG EXPOSURE DURING PREGNANCY [None]
  - METAL POISONING [None]
  - NEUROTOXICITY [None]
